FAERS Safety Report 5209154-0 (Version None)
Quarter: 2007Q1

REPORT INFORMATION
  Report Type: 
  Country: None (occurrence: None)
  Receive Date: 20070105
  Receipt Date: 20070103
  Transmission Date: 20070707
  Serious: Yes (Disabling)
  Sender: FDA-Public Use
  Company Number: 200610231

PATIENT
  Age: 36 Year
  Sex: Female
  Weight: 60 kg

DRUGS (5)
  1. HUMATE-P [Suspect]
     Indication: HAEMORRHAGE
     Dosage: 3000 IU DAILY IV;  2000 IU DAILY IV
     Route: 042
     Dates: start: 20060504
  2. HUMATE-P [Suspect]
     Indication: VON WILLEBRAND'S DISEASE
     Dosage: 3000 IU DAILY IV;  2000 IU DAILY IV
     Route: 042
     Dates: start: 20060504
  3. HUMATE-P [Suspect]
     Indication: HAEMORRHAGE
     Dosage: 3000 IU DAILY IV;  2000 IU DAILY IV
     Route: 042
     Dates: start: 20061207
  4. HUMATE-P [Suspect]
     Indication: VON WILLEBRAND'S DISEASE
     Dosage: 3000 IU DAILY IV;  2000 IU DAILY IV
     Route: 042
     Dates: start: 20061207
  5. HUMATE-P [Suspect]

REACTIONS (8)
  - ABDOMINAL PAIN [None]
  - ANGINA PECTORIS [None]
  - BLOOD PRESSURE DECREASED [None]
  - DRUG HYPERSENSITIVITY [None]
  - FACTOR VIII INHIBITION [None]
  - FIBRIN D DIMER INCREASED [None]
  - LOSS OF CONSCIOUSNESS [None]
  - PHARMACEUTICAL PRODUCT COMPLAINT [None]
